FAERS Safety Report 24827892 (Version 2)
Quarter: 2025Q1

REPORT INFORMATION
  Report Type: Spontaneous
  Country: FR (occurrence: FR)
  Receive Date: 20250109
  Receipt Date: 20250314
  Transmission Date: 20250408
  Serious: Yes (Other)
  Sender: NOVARTIS
  Company Number: None

PATIENT
  Age: 76 Year
  Sex: Female

DRUGS (8)
  1. LAPATINIB [Suspect]
     Active Substance: LAPATINIB
     Indication: Breast cancer
     Dosage: 750 MG/J
     Route: 048
     Dates: start: 20241217, end: 20250202
  2. LAPATINIB [Suspect]
     Active Substance: LAPATINIB
     Dosage: 250 MG/J
     Route: 048
     Dates: start: 20241206, end: 20241216
  3. LAPATINIB [Suspect]
     Active Substance: LAPATINIB
     Dosage: 750 MG/J
     Route: 048
     Dates: start: 20250210
  4. CAPECITABINE [Concomitant]
     Active Substance: CAPECITABINE
     Indication: Breast cancer
     Dosage: 2 G/J
     Route: 048
     Dates: start: 20241206, end: 20241212
  5. XELODA [Concomitant]
     Active Substance: CAPECITABINE
     Indication: Breast cancer
     Dosage: 2 G, QD, 2 G/J
     Route: 048
     Dates: start: 20250210
  6. XELODA [Concomitant]
     Active Substance: CAPECITABINE
     Dosage: 2 G, QD
     Route: 048
     Dates: start: 20250118, end: 20250202
  7. XELODA [Concomitant]
     Active Substance: CAPECITABINE
     Dosage: 2 G/J
     Route: 048
     Dates: start: 20241227, end: 20250110
  8. XELODA [Concomitant]
     Active Substance: CAPECITABINE
     Dosage: 2 G/J
     Route: 048
     Dates: start: 20241206, end: 20241219

REACTIONS (1)
  - Dizziness [Not Recovered/Not Resolved]

NARRATIVE: CASE EVENT DATE: 20241223
